FAERS Safety Report 17723833 (Version 11)
Quarter: 2020Q4

REPORT INFORMATION
  Report Type: Report from Study
  Country: PA (occurrence: PA)
  Receive Date: 20200429
  Receipt Date: 20201223
  Transmission Date: 20210113
  Serious: Yes (Hospitalization, Other)
  Sender: FDA-Public Use
  Company Number: NVSC2020PA115700

PATIENT
  Age: 57 Year
  Sex: Female

DRUGS (7)
  1. LACTULOSE. [Concomitant]
     Active Substance: LACTULOSE
     Indication: PRODUCT USED FOR UNKNOWN INDICATION
     Dosage: UNK (IN SOME OCCASIONS)
     Route: 065
  2. KISQALI [Suspect]
     Active Substance: RIBOCICLIB
     Indication: METASTASES TO BONE
     Dosage: 200 MG
     Route: 048
     Dates: start: 20200424
  3. ANASTRAZOLE SANDOZ 1 MG [Suspect]
     Active Substance: ANASTROZOLE
     Indication: PRODUCT USED FOR UNKNOWN INDICATION
     Dosage: 1 OT, QD
     Route: 065
  4. ZOMETA [Suspect]
     Active Substance: ZOLEDRONIC ACID
     Indication: PRODUCT USED FOR UNKNOWN INDICATION
     Dosage: UNK, Q3MO
     Route: 065
  5. KISQALI [Suspect]
     Active Substance: RIBOCICLIB
     Dosage: 600 MG, QD
     Route: 048
     Dates: start: 20200424
  6. KISQALI [Suspect]
     Active Substance: RIBOCICLIB
     Indication: BREAST CANCER METASTATIC
     Dosage: 200 MG
     Route: 065
  7. KISQALI [Suspect]
     Active Substance: RIBOCICLIB
     Dosage: 400 MG, QD (2 TABLETS)
     Route: 048
     Dates: start: 20201119

REACTIONS (30)
  - Degenerative bone disease [Unknown]
  - Hypoaesthesia [Unknown]
  - Flatulence [Unknown]
  - Feeling abnormal [Unknown]
  - Malaise [Unknown]
  - Back pain [Unknown]
  - Arthralgia [Unknown]
  - Discomfort [Unknown]
  - Decreased immune responsiveness [Unknown]
  - Dry skin [Unknown]
  - Pyrexia [Unknown]
  - Nausea [Unknown]
  - Fatigue [Unknown]
  - Abnormal faeces [Unknown]
  - Peripheral coldness [Unknown]
  - Erythema [Unknown]
  - Breast cancer metastatic [Unknown]
  - Feeling of body temperature change [Unknown]
  - Anxiety [Unknown]
  - Pruritus [Recovering/Resolving]
  - Transaminases increased [Unknown]
  - Metastases to bone [Unknown]
  - Osteoarthritis [Unknown]
  - Headache [Unknown]
  - Pain in extremity [Unknown]
  - Bone pain [Unknown]
  - Feeling hot [Unknown]
  - Musculoskeletal discomfort [Unknown]
  - Blood cholesterol increased [Unknown]
  - Decreased appetite [Unknown]

NARRATIVE: CASE EVENT DATE: 20200424
